FAERS Safety Report 14406070 (Version 1)
Quarter: 2018Q1

REPORT INFORMATION
  Report Type: Spontaneous
  Country: US (occurrence: US)
  Receive Date: 20180118
  Receipt Date: 20180118
  Transmission Date: 20180509
  Serious: No
  Sender: FDA-Public Use
  Company Number: US-JNJFOC-20171118577

PATIENT
  Sex: Male

DRUGS (1)
  1. RISPERDAL CONSTA [Suspect]
     Active Substance: RISPERIDONE
     Indication: PRODUCT USED FOR UNKNOWN INDICATION
     Dosage: INITIATED 4 YEARS AGO
     Route: 065

REACTIONS (6)
  - Visual impairment [Unknown]
  - Gingival erosion [Unknown]
  - Gait inability [Unknown]
  - Decreased activity [Unknown]
  - Impaired work ability [Unknown]
  - Eating disorder [Unknown]
